FAERS Safety Report 5647274-7 (Version None)
Quarter: 2008Q1

REPORT INFORMATION
  Report Type: 
  Country: None (occurrence: None)
  Receive Date: 20080303
  Receipt Date: 20080221
  Transmission Date: 20080703
  Serious: Yes (Other)
  Sender: FDA-Public Use
  Company Number: US-JNJFOC-20080205876

PATIENT
  Sex: Female
  Weight: 86.18 kg

DRUGS (11)
  1. DURAGESIC-100 [Suspect]
     Indication: NECK PAIN
     Route: 062
  2. DURAGESIC-100 [Suspect]
     Indication: BACK PAIN
     Route: 062
  3. ZANAFLEX [Concomitant]
     Indication: MUSCLE SPASMS
     Dosage: 4-8MG, 1 OR 2 TABLETS AT BEDTIME
     Route: 048
  4. LIDODERM [Concomitant]
     Indication: PAIN
     Dosage: 1 OR 2 AS NEEDED
     Route: 061
  5. RELPAX [Concomitant]
     Indication: MIGRAINE
     Route: 048
  6. NEXIUM [Concomitant]
     Indication: GASTROOESOPHAGEAL REFLUX DISEASE
     Dosage: 1 AS NEEDED
     Route: 048
  7. TENORMIN [Concomitant]
     Indication: ATRIAL FIBRILLATION
     Route: 048
  8. TRICOR [Concomitant]
     Indication: BLOOD CHOLESTEROL
     Dosage: AT BEDTIME
     Route: 048
  9. VYTORIN [Concomitant]
     Indication: BLOOD CHOLESTEROL
     Dosage: 10 / 20 MG
     Route: 048
  10. CLONAZEPAM [Concomitant]
     Indication: ANXIETY
     Dosage: 2X 1MG, AT BEDTIME
     Route: 048
  11. FLORICET [Concomitant]
     Indication: MIGRAINE
     Route: 048

REACTIONS (12)
  - BLADDER PAIN [None]
  - BLADDER SPASM [None]
  - BREAKTHROUGH PAIN [None]
  - CYSTITIS [None]
  - DEPRESSION [None]
  - HYPERHIDROSIS [None]
  - INSOMNIA [None]
  - MUSCLE SPASMS [None]
  - NEURALGIA [None]
  - RESTLESS LEGS SYNDROME [None]
  - SUICIDE ATTEMPT [None]
  - WRONG TECHNIQUE IN DRUG USAGE PROCESS [None]
